FAERS Safety Report 21502007 (Version 1)
Quarter: 2022Q4

REPORT INFORMATION
  Report Type: Spontaneous
  Country: CL (occurrence: None)
  Receive Date: 20221025
  Receipt Date: 20221025
  Transmission Date: 20230112
  Serious: Yes (Other)
  Sender: FDA-Public Use
  Company Number: CL-ROCHE-3205505

PATIENT
  Sex: Female

DRUGS (11)
  1. RITUXIMAB [Suspect]
     Active Substance: RITUXIMAB
     Indication: Follicular lymphoma
     Dosage: DOSE AND FREQUENCY WERE NOT REPORTED
     Route: 065
     Dates: start: 20131212, end: 20140327
  2. RITUXIMAB [Suspect]
     Active Substance: RITUXIMAB
     Dosage: DOSE AND FREQUENCY WERE NOT REPORTED - 3 CYCLES
     Route: 065
     Dates: start: 20181130, end: 20190401
  3. GAZYVA [Suspect]
     Active Substance: OBINUTUZUMAB
     Indication: Follicular lymphoma
     Dosage: DOSE AND FREQUENCY WERE NOT REPORTED - 2 CYCLES
     Route: 042
     Dates: start: 20220801, end: 20220920
  4. CYCLOPHOSPHAMIDE [Concomitant]
     Active Substance: CYCLOPHOSPHAMIDE
     Indication: Follicular lymphoma
     Dosage: DOSE AND FREQUENCY WERE NOT REPORTED
     Route: 065
     Dates: start: 20131212, end: 20140327
  5. CYCLOPHOSPHAMIDE [Concomitant]
     Active Substance: CYCLOPHOSPHAMIDE
     Dosage: DOSE AND FREQUENCY WERE NOT REPORTED - 3 CYCLES
     Route: 065
     Dates: start: 20181130, end: 20190401
  6. DOXORUBICIN HYDROCHLORIDE [Concomitant]
     Active Substance: DOXORUBICIN HYDROCHLORIDE
     Indication: Follicular lymphoma
     Dosage: DOSE AND FREQUENCY WERE NOT REPORTED
     Route: 065
     Dates: start: 20131212, end: 20140327
  7. VINCRISTINE SULFATE [Concomitant]
     Active Substance: VINCRISTINE SULFATE
     Indication: Follicular lymphoma
     Dosage: DOSE AND FREQUENCY WERE NOT REPORTED
     Route: 065
     Dates: start: 20131212, end: 20140327
  8. PREDNISONE [Concomitant]
     Active Substance: PREDNISONE
     Indication: Follicular lymphoma
     Dosage: DOSE AND FREQUENCY WERE NOT REPORTED
     Route: 065
     Dates: start: 20131212, end: 20140327
  9. FLUDARABINE [Concomitant]
     Active Substance: FLUDARABINE PHOSPHATE
     Indication: Follicular lymphoma
     Dosage: DOSE AND FREQUENCY WERE NOT REPORTED - 3 CYCLES
     Route: 065
     Dates: start: 20181130, end: 20190401
  10. BENDAMUSTINE [Concomitant]
     Active Substance: BENDAMUSTINE
     Indication: Follicular lymphoma
     Dosage: DOSE AND FREQUENCY WERE NOT REPORTED - 2 CYCLES
     Dates: start: 20220801, end: 20220920
  11. VALACYCLOVIR HYDROCHLORIDE [Concomitant]
     Active Substance: VALACYCLOVIR HYDROCHLORIDE
     Indication: Herpes zoster
     Dosage: DOSE AND FREQUENCY WERE NOT REPORTED
     Route: 048

REACTIONS (2)
  - Dyspnoea [Unknown]
  - Disease progression [Unknown]
